FAERS Safety Report 12752462 (Version 1)
Quarter: 2016Q3

REPORT INFORMATION
  Report Type: Spontaneous
  Country: US (occurrence: US)
  Receive Date: 20160916
  Receipt Date: 20160916
  Transmission Date: 20161109
  Serious: Yes (Other)
  Sender: FDA-Public Use
  Company Number: US-ROCHE-1830190

PATIENT
  Sex: Female
  Weight: 60.77 kg

DRUGS (6)
  1. ROCEPHIN [Suspect]
     Active Substance: CEFTRIAXONE SODIUM
     Indication: PYREXIA
     Route: 065
     Dates: start: 2016
  2. TAXOTERE [Concomitant]
     Active Substance: DOCETAXEL
  3. NEUPOGEN [Suspect]
     Active Substance: FILGRASTIM
     Indication: NEUTROPENIA
     Dosage: 300 MUG, DAILY
     Route: 065
     Dates: start: 2016
  4. CYTOXAN [Concomitant]
     Active Substance: CYCLOPHOSPHAMIDE
     Route: 065
     Dates: start: 20160609
  5. ADRIAMYCIN [Concomitant]
     Active Substance: DOXORUBICIN HYDROCHLORIDE
     Indication: DRUG HYPERSENSITIVITY
  6. CEFEPIME [Suspect]
     Active Substance: CEFEPIME HYDROCHLORIDE
     Indication: PYREXIA
     Route: 042
     Dates: start: 2016

REACTIONS (6)
  - Clostridium difficile infection [Unknown]
  - Febrile neutropenia [Unknown]
  - White blood cell disorder [Unknown]
  - Bone pain [Unknown]
  - Neutrophil count increased [Unknown]
  - Blood count abnormal [Unknown]
